FAERS Safety Report 19075762 (Version 1)
Quarter: 2021Q1

REPORT INFORMATION
  Report Type: Spontaneous
  Country: US (occurrence: US)
  Receive Date: 20210330
  Receipt Date: 20210330
  Transmission Date: 20210420
  Serious: No
  Sender: FDA-Public Use
  Company Number: US-SA-2021SA102613

PATIENT
  Age: 48 Year
  Sex: Female

DRUGS (4)
  1. CLOLAR [Suspect]
     Active Substance: CLOFARABINE
     Dosage: UNK
     Dates: start: 202005
  2. CLOLAR [Suspect]
     Active Substance: CLOFARABINE
     Dosage: UNK
     Dates: start: 202010
  3. CLOLAR [Suspect]
     Active Substance: CLOFARABINE
     Indication: ROSAI-DORFMAN SYNDROME
     Dosage: UNK
     Dates: start: 2019
  4. CLOLAR [Suspect]
     Active Substance: CLOFARABINE
     Dosage: UNK
     Dates: start: 202002

REACTIONS (2)
  - Blood count abnormal [Unknown]
  - Off label use [Unknown]
